FAERS Safety Report 5514103-1 (Version None)
Quarter: 2007Q4

REPORT INFORMATION
  Report Type: 
  Country: None (occurrence: None)
  Receive Date: 20071106
  Receipt Date: 20070105
  Transmission Date: 20080405
  Serious: Yes (Other)
  Sender: FDA-Public Use
  Company Number: USA040464202

PATIENT
  Age: 58 Year
  Sex: Male
  Weight: 82.3 kg

DRUGS (19)
  1. ZYPREXA [Suspect]
     Indication: BIPOLAR I DISORDER
     Dosage: 10 MG ; 15 MG, DAILY (1/D), ORAL
     Route: 048
     Dates: end: 20040128
  2. ZYPREXA [Suspect]
     Indication: BIPOLAR I DISORDER
     Dosage: 10 MG ; 15 MG, DAILY (1/D), ORAL
     Route: 048
     Dates: start: 20010305
  3. PROZAC [Suspect]
     Dosage: ORAL
     Route: 048
     Dates: end: 19960101
  4. HUMULIN N [Suspect]
     Indication: DIABETES MELLITUS
     Dosage: 48 U, DAILY (1/D), SUBCUTANEOUS
     Route: 058
     Dates: start: 20030701
  5. LANOXIN [Concomitant]
  6. SYNTHROID [Concomitant]
  7. PAXIL [Concomitant]
  8. METFORMIN HCL [Concomitant]
  9. AMARYL [Concomitant]
  10. WELLBUTRIN [Concomitant]
  11. ASPIRIN [Concomitant]
  12. XANAX [Concomitant]
  13. RISPERIDONE [Concomitant]
  14. AVANDIA [Concomitant]
  15. XANAX [Concomitant]
  16. PREVACID [Concomitant]
  17. LANTUS [Concomitant]
  18. ZOLOFT [Concomitant]
  19. NAVANE [Concomitant]

REACTIONS (29)
  - AFFECT LABILITY [None]
  - ANGER [None]
  - ANOREXIA [None]
  - ANXIETY [None]
  - ARTHRALGIA [None]
  - ASTHENIA [None]
  - BLOOD GLUCOSE INCREASED [None]
  - BLOOD TRIGLYCERIDES INCREASED [None]
  - DELUSION [None]
  - DIABETES MELLITUS [None]
  - DRUG WITHDRAWAL SYNDROME [None]
  - EARLY MORNING AWAKENING [None]
  - FATIGUE [None]
  - HALLUCINATION [None]
  - HYPERCHOLESTEROLAEMIA [None]
  - HYPOAESTHESIA [None]
  - HYPOGLYCAEMIA [None]
  - IMPULSIVE BEHAVIOUR [None]
  - MORBID THOUGHTS [None]
  - NECK PAIN [None]
  - NIGHTMARE [None]
  - PANIC REACTION [None]
  - POLYDIPSIA [None]
  - PSYCHOMOTOR HYPERACTIVITY [None]
  - SEXUAL DYSFUNCTION [None]
  - SOCIAL AVOIDANT BEHAVIOUR [None]
  - SUICIDAL IDEATION [None]
  - TEMPERATURE INTOLERANCE [None]
  - VISUAL DISTURBANCE [None]
